FAERS Safety Report 5759333-9 (Version None)
Quarter: 2008Q2

REPORT INFORMATION
  Report Type: 
  Country: None (occurrence: None)
  Receive Date: 20080530
  Receipt Date: 20080513
  Transmission Date: 20081010
  Serious: Yes (Life-Threatening, Other)
  Sender: FDA-Public Use
  Company Number: ES-DEXPHARM-20080475

PATIENT
  Age: 45 Year
  Sex: Female

DRUGS (5)
  1. OMEPRAZOLE [Suspect]
     Indication: ABDOMINAL PAIN UPPER
     Dosage: ^1 TABLET^ { 20 MG MILLIGRAM(S) } ORAL, INTRAVENOUS DRIP
  2. DEXKETOPROFEN [Concomitant]
  3. CIPROFLOXACIN HCL [Concomitant]
  4. RANITIDINE [Concomitant]
  5. DIPYRONE [METAMIZOLE] [Concomitant]

REACTIONS (2)
  - ANAPHYLACTIC REACTION [None]
  - GASTROENTERITIS [None]
